FAERS Safety Report 6182300-0 (Version None)
Quarter: 2009Q2

REPORT INFORMATION
  Report Type: 
  Country: None (occurrence: None)
  Receive Date: 20090505
  Receipt Date: 20090505
  Transmission Date: 20091009
  Serious: No
  Sender: FDA-Public Use
  Company Number: None

PATIENT
  Age: 52 Year
  Sex: Female
  Weight: 72.5755 kg

DRUGS (2)
  1. CIPROFLAXIN DO NOT RECALL DO NOT RECALL [Suspect]
     Indication: KIDNEY INFECTION
     Dosage: EVERY 12 HRS PO
     Route: 048
     Dates: start: 20071223, end: 20080101
  2. CIRPO [Concomitant]

REACTIONS (13)
  - APHASIA [None]
  - APPARENT DEATH [None]
  - BLISTER [None]
  - CONFUSIONAL STATE [None]
  - FIBROMYALGIA [None]
  - HALLUCINATION [None]
  - HYPERSENSITIVITY [None]
  - INSOMNIA [None]
  - MUSCLE TWITCHING [None]
  - RHEUMATOID ARTHRITIS [None]
  - SPEECH DISORDER [None]
  - THERAPEUTIC AGENT TOXICITY [None]
  - TOOTH FRACTURE [None]
